FAERS Safety Report 26090457 (Version 3)
Quarter: 2025Q4

REPORT INFORMATION
  Report Type: Spontaneous
  Country: US (occurrence: US)
  Receive Date: 20251126
  Receipt Date: 20251230
  Transmission Date: 20260118
  Serious: No
  Sender: TOLMAR
  Company Number: US-Tolmar-TLM-2025-08731

PATIENT

DRUGS (2)
  1. ELIGARD [Suspect]
     Active Substance: LEUPROLIDE ACETATE
     Indication: Prostate cancer
     Dosage: LOT NUMBER: 15270RCUS EXP: 9/2026?NDC: 62935-3640-40?GTIN: 00362935306405?SN: 8005149350267?DOSE NOT
  2. DEVICE [Suspect]
     Active Substance: DEVICE
     Indication: Prostate cancer
     Dosage: LOT NUMBER: 15270RCUS EXP: 9/2026?NDC: 62935-3640-40?GTIN: 00362935306405?SN: 8005149350267

REACTIONS (1)
  - Device use issue [Recovered/Resolved]
